FAERS Safety Report 8573519-X (Version None)
Quarter: 2012Q3

REPORT INFORMATION
  Report Type: 
  Country: None (occurrence: None)
  Receive Date: 20120806
  Receipt Date: 20120730
  Transmission Date: 20120928
  Serious: Yes (Other)
  Sender: FDA-Public Use
  Company Number: BR-009507513-1207BRA013036

PATIENT

DRUGS (3)
  1. TEGRETOL [Concomitant]
     Indication: CONVULSION
     Dosage: 200 MG, QD
     Route: 048
     Dates: start: 20120501
  2. DESLORATADINE [Suspect]
     Indication: COUGH
  3. DESLORATADINE [Suspect]
     Indication: INFLUENZA
     Dosage: 0.75 MG, ONCE
     Route: 048
     Dates: start: 20120728, end: 20120728

REACTIONS (5)
  - CONVULSION IN CHILDHOOD [None]
  - HEADACHE [None]
  - OFF LABEL USE [None]
  - DRY MOUTH [None]
  - PSYCHOMOTOR HYPERACTIVITY [None]
